FAERS Safety Report 10376394 (Version 2)
Quarter: 2014Q3

REPORT INFORMATION
  Report Type: Spontaneous
  Country: JP (occurrence: JP)
  Receive Date: 20140811
  Receipt Date: 20140902
  Transmission Date: 20150326
  Serious: Yes (Hospitalization)
  Sender: FDA-Public Use
  Company Number: JP-PFIZER INC-2014219089

PATIENT
  Age: 73 Year
  Sex: Male

DRUGS (5)
  1. GLIMEPIRIDE. [Suspect]
     Active Substance: GLIMEPIRIDE
     Dosage: (78 DF OF 3MG) 234 MG, SINGLE
     Route: 048
  2. CANDESARTAN [Suspect]
     Active Substance: CANDESARTAN
     Dosage: (29 DF OF 8MG) 232 MG, SINGLE
     Route: 048
  3. METFORMIN [Suspect]
     Active Substance: METFORMIN HYDROCHLORIDE
     Dosage: (200 DF OF 250MG) 50000 MG, SINGLE
     Route: 048
  4. AMLODIPINE BESILATE [Suspect]
     Active Substance: AMLODIPINE BESYLATE
     Dosage: (84 DF OF 5 MG) 420 MG, SINGLE
     Route: 048
  5. ALOGLIPTIN [Suspect]
     Active Substance: ALOGLIPTIN
     Dosage: (2 DF OF 6.25MG) 12.5 MG, SINGLE
     Route: 048

REACTIONS (7)
  - Vomiting [Unknown]
  - Intentional overdose [Unknown]
  - Lactic acidosis [Recovering/Resolving]
  - Blood glucose decreased [Unknown]
  - Suicide attempt [Unknown]
  - Shock [Unknown]
  - Hypothermia [Unknown]
